FAERS Safety Report 4917479-9 (Version None)
Quarter: 2006Q1

REPORT INFORMATION
  Report Type: 
  Country: None (occurrence: None)
  Receive Date: 20060221
  Receipt Date: 20060206
  Transmission Date: 20060701
  Serious: Yes (Death)
  Sender: FDA-Public Use
  Company Number: GB-JNJFOC-20050805708

PATIENT
  Age: 64 Year
  Sex: Female

DRUGS (3)
  1. CAELYX [Suspect]
     Route: 042
  2. CAELYX [Suspect]
     Indication: OVARIAN CANCER
     Route: 042
  3. DICLOFENAC [Suspect]
     Indication: DRUG USE FOR UNKNOWN INDICATION

REACTIONS (2)
  - GASTROINTESTINAL HAEMORRHAGE [None]
  - OVARIAN CANCER [None]
